FAERS Safety Report 4340736-4 (Version None)
Quarter: 2004Q2

REPORT INFORMATION
  Report Type: 
  Country: None (occurrence: None)
  Receive Date: 20040413
  Receipt Date: 20040401
  Transmission Date: 20050107
  Serious: Yes (Hospitalization)
  Sender: FDA-Public Use
  Company Number: 138048USA

PATIENT
  Age: 80 Year
  Sex: Female
  Weight: 74.8435 kg

DRUGS (4)
  1. CARBIDOPA/LEVODOPA 25/100 MG [Suspect]
     Indication: PARKINSON'S DISEASE
     Dates: start: 20020101, end: 20031229
  2. TENORMIN [Concomitant]
  3. VALIUM [Concomitant]
  4. ACCUPRIL [Concomitant]

REACTIONS (2)
  - BURNING SENSATION [None]
  - DIVERTICULUM INTESTINAL HAEMORRHAGIC [None]
